FAERS Safety Report 6317252-3 (Version None)
Quarter: 2009Q3

REPORT INFORMATION
  Report Type: 
  Country: None (occurrence: None)
  Receive Date: 20090819
  Receipt Date: 20090806
  Transmission Date: 20100115
  Serious: Yes (Other)
  Sender: FDA-Public Use
  Company Number: 8050104

PATIENT
  Age: 96 Year
  Sex: Male
  Weight: 68 kg

DRUGS (13)
  1. KEPPRA [Suspect]
     Indication: CONVULSION
     Dosage: 500 MG /D, PO
     Route: 048
     Dates: start: 20090802
  2. GENERIC KEPPRA [Suspect]
     Indication: CONVULSION
     Dosage: 250 MG 2/D; PO
     Route: 048
     Dates: start: 20090601, end: 20090801
  3. KEPPRA [Suspect]
     Indication: CONVULSION
     Dosage: 250 MG 2/D; PO
     Route: 048
     Dates: end: 20090601
  4. KEPPRA [Suspect]
     Indication: CONVULSION
     Dosage: 500 MG 2/D; PO
     Route: 048
  5. LASIX [Concomitant]
  6. SOTALOL HYDROCHLORIDE [Concomitant]
  7. COUMADIN [Concomitant]
  8. NORVASC [Concomitant]
  9. ADVAIR HFA [Concomitant]
  10. TRAVATAN [Concomitant]
  11. AZOPT [Concomitant]
  12. FERGON [Concomitant]
  13. ASPIRIN [Concomitant]

REACTIONS (2)
  - ATRIAL FIBRILLATION [None]
  - SOMNOLENCE [None]
